FAERS Safety Report 13647091 (Version 1)
Quarter: 2017Q2

REPORT INFORMATION
  Report Type: Report from Study
  Country: MA (occurrence: MA)
  Receive Date: 20170613
  Receipt Date: 20170613
  Transmission Date: 20170830
  Serious: Yes (Other)
  Sender: FDA-Public Use
  Company Number: MA-AMGEN-MARNI2017089104

PATIENT
  Age: 48 Year
  Sex: Female
  Weight: 60 kg

DRUGS (3)
  1. AMEP [Concomitant]
     Indication: ANGINA PECTORIS
     Dosage: 5 MG, DAILY
     Route: 048
  2. IVABRADINE [Suspect]
     Active Substance: IVABRADINE
     Indication: CARDIAC FAILURE CHRONIC
     Dosage: 5 MG, BID
     Route: 048
     Dates: end: 20160601
  3. IVABRADINE [Suspect]
     Active Substance: IVABRADINE
     Indication: CORONARY ARTERY DISEASE

REACTIONS (2)
  - Presyncope [Recovered/Resolved]
  - Bradycardia [Recovering/Resolving]

NARRATIVE: CASE EVENT DATE: 20160601
